FAERS Safety Report 5651035-2 (Version None)
Quarter: 2008Q1

REPORT INFORMATION
  Report Type: 
  Country: None (occurrence: None)
  Receive Date: 20080305
  Receipt Date: 20080227
  Transmission Date: 20080703
  Serious: Yes (Other)
  Sender: FDA-Public Use
  Company Number: A0712502A

PATIENT
  Age: 60 Year
  Sex: Female

DRUGS (2)
  1. VALTREX [Suspect]
     Indication: DRUG USE FOR UNKNOWN INDICATION
     Dosage: 2G TWICE PER DAY
     Route: 065
     Dates: start: 20080201, end: 20080201
  2. HEMATOPOETIC PROGENITOR CELLS HUMAN [Concomitant]
     Dates: start: 20080201, end: 20080201

REACTIONS (3)
  - APLASTIC ANAEMIA [None]
  - BONE MARROW FAILURE [None]
  - PURPURA [None]
